FAERS Safety Report 4466634-3 (Version None)
Quarter: 2004Q4

REPORT INFORMATION
  Report Type: 
  Country: None (occurrence: None)
  Receive Date: 20041001
  Receipt Date: 20041001
  Transmission Date: 20050328
  Serious: Yes (Other)
  Sender: FDA-Public Use
  Company Number: None

PATIENT
  Age: 28 Year
  Sex: Female
  Weight: 78.9259 kg

DRUGS (1)
  1. VIOXX [Suspect]
     Indication: PAIN IN JAW
     Dosage: 1 PILL PER DAY DENTAL
     Route: 004
     Dates: start: 20040908, end: 20040908

REACTIONS (3)
  - DIFFICULTY IN WALKING [None]
  - DIZZINESS [None]
  - DYSSTASIA [None]
